FAERS Safety Report 25371630 (Version 2)
Quarter: 2025Q2

REPORT INFORMATION
  Report Type: Spontaneous
  Country: US (occurrence: US)
  Receive Date: 20250529
  Receipt Date: 20250604
  Transmission Date: 20250716
  Serious: Yes (Other)
  Sender: ELI LILLY AND COMPANY
  Company Number: US-ELI_LILLY_AND_COMPANY-US202505018403

PATIENT
  Age: 80 Year
  Sex: Female

DRUGS (2)
  1. TADALAFIL [Suspect]
     Active Substance: TADALAFIL
     Indication: Product used for unknown indication
     Route: 065
  2. TYVASO DPI [Suspect]
     Active Substance: TREPROSTINIL
     Indication: Pulmonary hypertension
     Dosage: 16 UG, QID
     Route: 055
     Dates: start: 20250513

REACTIONS (2)
  - Hypotension [Recovered/Resolved]
  - Headache [Recovered/Resolved]

NARRATIVE: CASE EVENT DATE: 20250515
